FAERS Safety Report 16198485 (Version 1)
Quarter: 2019Q2

REPORT INFORMATION
  Report Type: Report from Study
  Country: US (occurrence: US)
  Receive Date: 20190415
  Receipt Date: 20190415
  Transmission Date: 20190711
  Serious: Yes (Life-Threatening, Hospitalization, Disabling, Other)
  Sender: FDA-Public Use
  Company Number: US-ASTRAZENECA-2019SE20691

PATIENT
  Age: 24302 Day
  Sex: Male

DRUGS (38)
  1. TAGRISSO [Suspect]
     Active Substance: OSIMERTINIB
     Indication: BRONCHIAL CARCINOMA
     Route: 048
     Dates: start: 20190117, end: 20190225
  2. TAGRISSO [Suspect]
     Active Substance: OSIMERTINIB
     Indication: BRONCHIAL CARCINOMA
     Route: 048
     Dates: start: 20190304
  3. VITAMIN D3 [Concomitant]
     Active Substance: CHOLECALCIFEROL
  4. MULTIVITAMIN [Concomitant]
     Active Substance: VITAMINS
  5. DELTASONE [Concomitant]
     Active Substance: PREDNISONE
     Route: 048
  6. VITAMIN D3 [Concomitant]
     Active Substance: CHOLECALCIFEROL
  7. PEPCID [Concomitant]
     Active Substance: FAMOTIDINE
     Route: 048
  8. VITAMIN D2 [Concomitant]
     Active Substance: ERGOCALCIFEROL
  9. TYLENOL [Concomitant]
     Active Substance: ACETAMINOPHEN
     Indication: HEADACHE
  10. MELATONIN [Concomitant]
     Active Substance: MELATONIN
     Route: 048
  11. CENTRUM [Concomitant]
     Active Substance: VITAMINS
  12. MYCOSTATIN [Concomitant]
     Active Substance: NYSTATIN
     Dosage: APPLY TOPICALLY TWO TIMES A DAY
     Route: 061
  13. SENNOSIDES. [Concomitant]
     Active Substance: SENNOSIDES
  14. CHERATUSSIN [Concomitant]
     Active Substance: AMMONIUM CHLORIDE\DEXTROMETHORPHAN\SODIUM CITRATE
  15. ZOLPIDEM [Concomitant]
     Active Substance: ZOLPIDEM\ZOLPIDEM TARTRATE
  16. TYLENOL [Concomitant]
     Active Substance: ACETAMINOPHEN
     Indication: PYREXIA
  17. NEURONTIN [Concomitant]
     Active Substance: GABAPENTIN
  18. TAGRISSO [Suspect]
     Active Substance: OSIMERTINIB
     Indication: BRONCHIAL CARCINOMA
     Route: 048
     Dates: start: 20190126
  19. PRILOSEC [Suspect]
     Active Substance: OMEPRAZOLE MAGNESIUM
     Route: 065
  20. COLACE [Concomitant]
     Active Substance: DOCUSATE SODIUM
     Route: 048
  21. OXYBUTYNIN. [Concomitant]
     Active Substance: OXYBUTYNIN CHLORIDE
  22. DOXYCYCLINE. [Concomitant]
     Active Substance: DOXYCYCLINE
  23. BACTRIM DS [Concomitant]
     Active Substance: SULFAMETHOXAZOLE\TRIMETHOPRIM
     Dosage: THREE TIMES EVERY WEEK FOR 2 DOSES
     Route: 048
  24. ZOFRAN [Concomitant]
     Active Substance: ONDANSETRON HYDROCHLORIDE
  25. DITROPAN XL [Concomitant]
     Active Substance: OXYBUTYNIN CHLORIDE
  26. FLOMAX [Concomitant]
     Active Substance: TAMSULOSIN HYDROCHLORIDE
     Route: 048
  27. ELIQUIS [Concomitant]
     Active Substance: APIXABAN
     Route: 048
  28. ATIVAN [Concomitant]
     Active Substance: LORAZEPAM
  29. REFRESH PLUS [Concomitant]
     Active Substance: CARBOXYMETHYLCELLULOSE SODIUM
     Route: 047
  30. FOLVITE [Concomitant]
     Active Substance: FOLIC ACID
     Route: 048
  31. THERA M PLUS [Concomitant]
     Route: 048
  32. PROVENTIL HFA [Concomitant]
     Active Substance: ALBUTEROL SULFATE
  33. CALCIUM CITRATE [Concomitant]
     Active Substance: CALCIUM CITRATE
  34. CALCIUM [Concomitant]
     Active Substance: CALCIUM
  35. DULCOLAX NOS [Concomitant]
     Active Substance: BISACODYL OR DOCUSATE SODIUM
     Dosage: INSERT 1 SUPPOSITORY INTO RECTUM ONCE A DAILY AS NEEDED
  36. DUONEB [Concomitant]
     Active Substance: ALBUTEROL SULFATE\IPRATROPIUM BROMIDE
  37. SODIUM CHLORIDE. [Concomitant]
     Active Substance: SODIUM CHLORIDE
     Route: 048
  38. LEVAQUIN [Concomitant]
     Active Substance: LEVOFLOXACIN

REACTIONS (15)
  - Gastrooesophageal reflux disease [Unknown]
  - Lung adenocarcinoma [Unknown]
  - Liver function test abnormal [Unknown]
  - Hyponatraemia [Unknown]
  - Anaemia [Unknown]
  - Pneumonitis [Unknown]
  - Pneumonia [Unknown]
  - Acute respiratory distress syndrome [Unknown]
  - Fatigue [Not Recovered/Not Resolved]
  - Muscle disorder [Unknown]
  - Dyspnoea [Not Recovered/Not Resolved]
  - Cough [Not Recovered/Not Resolved]
  - Dyspnoea [Not Recovered/Not Resolved]
  - Pulmonary embolism [Unknown]
  - Sleep apnoea syndrome [Unknown]

NARRATIVE: CASE EVENT DATE: 20190127
